FAERS Safety Report 24933849 (Version 1)
Quarter: 2025Q1

REPORT INFORMATION
  Report Type: Report from Study
  Country: US (occurrence: US)
  Receive Date: 20250206
  Receipt Date: 20250206
  Transmission Date: 20250409
  Serious: Yes (Other)
  Sender: EXELIXIS
  Company Number: US-EXELIXIS-CABO-24075184

PATIENT
  Sex: Male

DRUGS (4)
  1. CABOMETYX [Suspect]
     Active Substance: CABOZANTINIB S-MALATE
     Indication: Renal cancer
     Dosage: 40 MG, QD
     Route: 048
     Dates: start: 20220824
  2. ALBUTEROL [Concomitant]
     Active Substance: ALBUTEROL
  3. HYDROCORTISONE [Concomitant]
     Active Substance: HYDROCORTISONE
  4. SYNTHROID [Concomitant]
     Active Substance: LEVOTHYROXINE SODIUM

REACTIONS (4)
  - Malignant neoplasm progression [Unknown]
  - Sleep disorder [Unknown]
  - Stress [Unknown]
  - Fatigue [Unknown]
